FAERS Safety Report 19319544 (Version 1)
Quarter: 2021Q2

REPORT INFORMATION
  Report Type: Spontaneous
  Country: US (occurrence: US)
  Receive Date: 20210528
  Receipt Date: 20210528
  Transmission Date: 20210717
  Serious: Yes (Life-Threatening, Hospitalization)
  Sender: FDA-Public Use
  Company Number: None

PATIENT
  Age: 78 Year
  Sex: Male
  Weight: 95 kg

DRUGS (4)
  1. TENECTEPLASE [Suspect]
     Active Substance: TENECTEPLASE
     Indication: ISCHAEMIC STROKE
     Dosage: ?          OTHER FREQUENCY:ONCE;?
     Route: 040
     Dates: start: 20210522, end: 20210522
  2. IOPAMIDOL [Concomitant]
     Active Substance: IOPAMIDOL
     Dates: start: 20210522, end: 20210522
  3. LABETALOL IV [Concomitant]
     Dates: start: 20210522, end: 20210525
  4. ONDANSETRON IV [Concomitant]
     Dates: start: 20210522, end: 20210522

REACTIONS (1)
  - Swelling face [None]

NARRATIVE: CASE EVENT DATE: 20210522
